FAERS Safety Report 10026706 (Version 1)
Quarter: 2014Q1

REPORT INFORMATION
  Report Type: Spontaneous
  Country: FR (occurrence: FR)
  Receive Date: 20140321
  Receipt Date: 20140321
  Transmission Date: 20141002
  Serious: Yes (Hospitalization)
  Sender: FDA-Public Use
  Company Number: FR-UCBSA-114634

PATIENT
  Age: 55 Year
  Sex: Female

DRUGS (3)
  1. KEPPRA [Suspect]
     Indication: EPILEPSY
     Dosage: 500 MG, SCORED TABLET
     Route: 048
     Dates: start: 20131227, end: 20140213
  2. INEXIUM [Suspect]
     Dosage: 40 MG
     Route: 048
     Dates: start: 20131227, end: 20140213
  3. SEROPLEX [Concomitant]
     Dosage: 10 MG, SCORED TABLET
     Route: 048
     Dates: start: 20140129, end: 20140208

REACTIONS (1)
  - Thrombocytopenia [Recovered/Resolved]
